FAERS Safety Report 8274326 (Version 2)
Quarter: 2012Q4

REPORT INFORMATION
  Report Type: 
  Country: FR (occurrence: FR)
  Receive Date: 20111205
  Receipt Date: 20121024
  Transmission Date: 20130627
  Serious: Yes (Other)
  Sender: FDA-Public Use
  Company Number: FR-AMGEN-FRASP2011063336

PATIENT
  Age: 55 Year
  Sex: Male

DRUGS (6)
  1. ENBREL [Suspect]
     Indication: RHEUMATOID ARTHRITIS
     Dosage: 50 mg, qwk
     Dates: start: 201010, end: 2012
  2. KARDEGIC [Concomitant]
     Dosage: 75 mg, UNK
  3. CRESTOR [Concomitant]
     Dosage: 10 mg, UNK
  4. CORTANCYL [Concomitant]
     Dosage: 5 mg, 1x/day
  5. SEROPLEX [Concomitant]
     Dosage: UNK
  6. SPECIAFOLDINE [Concomitant]
     Dosage: UNK

REACTIONS (3)
  - Retinal tear [Unknown]
  - Skin exfoliation [Unknown]
  - Herpes zoster [Unknown]
